FAERS Safety Report 14708673 (Version 2)
Quarter: 2018Q2

REPORT INFORMATION
  Report Type: Spontaneous
  Country: US (occurrence: US)
  Receive Date: 20180403
  Receipt Date: 20180509
  Transmission Date: 20180711
  Serious: Yes (Other)
  Sender: FDA-Public Use
  Company Number: US-AUROBINDO-AUR-APL-2018-017929

PATIENT
  Age: 74 Year
  Sex: Female

DRUGS (1)
  1. VANCOMYCIN INJECTION [Suspect]
     Active Substance: VANCOMYCIN
     Indication: INFECTION PROPHYLAXIS
     Dosage: ()
     Route: 065

REACTIONS (4)
  - Drug hypersensitivity [Recovering/Resolving]
  - Retinal ischaemia [Unknown]
  - Haemorrhagic vasculitis [Recovering/Resolving]
  - Retinal vasculitis [Recovering/Resolving]
